FAERS Safety Report 7300933-2 (Version None)
Quarter: 2011Q1

REPORT INFORMATION
  Report Type: 
  Country: None (occurrence: None)
  Receive Date: 20110218
  Receipt Date: 20110208
  Transmission Date: 20110831
  Serious: Yes (Death, Hospitalization)
  Sender: FDA-Public Use
  Company Number: SE-SANOFI-AVENTIS-2011SA007824

PATIENT
  Age: 42 Year
  Sex: Female

DRUGS (5)
  1. TAXOTERE [Suspect]
     Indication: BREAST CANCER
     Route: 042
     Dates: start: 20101207, end: 20101207
  2. NEULASTA [Concomitant]
  3. BETAPRED [Concomitant]
  4. EPIRUBICIN [Suspect]
     Indication: BREAST CANCER
     Route: 042
     Dates: start: 20101207, end: 20101207
  5. ONDANSETRON [Concomitant]

REACTIONS (6)
  - GASTROINTESTINAL NECROSIS [None]
  - INTESTINAL ISCHAEMIA [None]
  - PNEUMONIA [None]
  - NEUTROPENIC COLITIS [None]
  - INTESTINAL PERFORATION [None]
  - SEPSIS [None]
